FAERS Safety Report 5912391-0 (Version None)
Quarter: 2008Q4

REPORT INFORMATION
  Report Type: 
  Country: None (occurrence: None)
  Receive Date: 20081007
  Receipt Date: 20081007
  Transmission Date: 20090506
  Serious: Yes (Hospitalization)
  Sender: FDA-Public Use
  Company Number: None

PATIENT
  Age: 61 Year
  Sex: Male

DRUGS (2)
  1. MORPHINE [Suspect]
     Indication: PAIN
     Dosage: 2 MG PRN IV
     Route: 042
     Dates: start: 20080702, end: 20080702
  2. OXYCODONE HCL [Suspect]
     Indication: PAIN
     Dosage: 5 MG PRN PO
     Route: 048
     Dates: start: 20080703, end: 20080703

REACTIONS (2)
  - ILEUS [None]
  - SMALL INTESTINAL OBSTRUCTION [None]
